FAERS Safety Report 6871893-3 (Version None)
Quarter: 2010Q3

REPORT INFORMATION
  Report Type: 
  Country: None (occurrence: None)
  Receive Date: 20100723
  Receipt Date: 20100716
  Transmission Date: 20110219
  Serious: Yes (Other)
  Sender: FDA-Public Use
  Company Number: US-JNJFOC-20100704929

PATIENT
  Sex: Female
  Weight: 92.99 kg

DRUGS (1)
  1. ORTHO CYCLEN-28 [Suspect]
     Indication: CONTRACEPTION
     Route: 048

REACTIONS (4)
  - ASTHMA [None]
  - OVARIAN CYST [None]
  - PRODUCT QUALITY ISSUE [None]
  - VAGINAL HAEMORRHAGE [None]
